FAERS Safety Report 6477657-7 (Version None)
Quarter: 2009Q4

REPORT INFORMATION
  Report Type: 
  Country: None (occurrence: None)
  Receive Date: 20091207
  Receipt Date: 20091201
  Transmission Date: 20100525
  Serious: Yes (Other)
  Sender: FDA-Public Use
  Company Number: GB-TEVA-176967ISR

PATIENT
  Age: 37 Year
  Sex: Female

DRUGS (2)
  1. DOXYCYCLINE [Suspect]
     Indication: ENDOMETRIOSIS
  2. METRONIDAZOLE [Suspect]
     Route: 048
     Dates: start: 20080717, end: 20080724

REACTIONS (1)
  - DRUG EXPOSURE DURING PREGNANCY [None]
